FAERS Safety Report 5624245-8 (Version None)
Quarter: 2008Q1

REPORT INFORMATION
  Report Type: 
  Country: None (occurrence: None)
  Receive Date: 20080208
  Receipt Date: 20080208
  Transmission Date: 20080703
  Serious: Yes (Hospitalization)
  Sender: FDA-Public Use
  Company Number: None

PATIENT
  Sex: Male
  Weight: 82.1 kg

DRUGS (4)
  1. CYTARABINE [Suspect]
     Dosage: 72 G
     Dates: end: 20071215
  2. LEVAQUIN [Concomitant]
  3. DIFLUCAN [Concomitant]
  4. ACYCLOVIR [Concomitant]

REACTIONS (5)
  - CHILLS [None]
  - LUNG DISORDER [None]
  - NAUSEA [None]
  - PYREXIA [None]
  - VOMITING [None]
